FAERS Safety Report 9688249 (Version 2)
Quarter: 2013Q4

REPORT INFORMATION
  Report Type: Spontaneous
  Country: CZ (occurrence: CZ)
  Receive Date: 20131114
  Receipt Date: 20131212
  Transmission Date: 20140711
  Serious: Yes (Death, Life-Threatening, Hospitalization, Other)
  Sender: FDA-Public Use
  Company Number: CZ-NOVOPROD-391734

PATIENT
  Age: 66 Year
  Sex: Male
  Weight: 90 kg

DRUGS (5)
  1. NOVOMIX 30 FLEXPEN [Suspect]
     Indication: DIABETES MELLITUS
     Dosage: 36 U, QD (24U MORNING AND 12U EVENING)
     Route: 058
     Dates: start: 201309, end: 201310
  2. DIAPREL [Concomitant]
     Indication: PRODUCT USED FOR UNKNOWN INDICATION
     Dosage: 1-1-0
  3. FRAXIPARINE FORTE [Concomitant]
     Indication: PRODUCT USED FOR UNKNOWN INDICATION
  4. GODASAL [Concomitant]
     Indication: PRODUCT USED FOR UNKNOWN INDICATION
     Dosage: 1-0-0
  5. MILURIT [Concomitant]
     Indication: PRODUCT USED FOR UNKNOWN INDICATION
     Dosage: 300 MG, QD
     Route: 048

REACTIONS (6)
  - Death [Fatal]
  - Coma [Fatal]
  - Haemorrhage intracranial [Fatal]
  - Condition aggravated [Unknown]
  - Hyperglycaemia [Unknown]
  - Product quality issue [Unknown]
